FAERS Safety Report 6822588-3 (Version None)
Quarter: 2010Q3

REPORT INFORMATION
  Report Type: 
  Country: None (occurrence: None)
  Receive Date: 20100708
  Receipt Date: 20100625
  Transmission Date: 20110219
  Serious: Yes (Other)
  Sender: FDA-Public Use
  Company Number: DK-ELI_LILLY_AND_COMPANY-DK201003002836

PATIENT
  Sex: Female
  Weight: 58 kg

DRUGS (3)
  1. CYMBALTA [Suspect]
     Indication: DEPRESSION
     Dosage: 60 MG, DAILY (1/D)
     Route: 048
     Dates: start: 20070413, end: 20100219
  2. SURMONTIL [Concomitant]
     Indication: DEPRESSION
     Dosage: 25MG 1/4 TABLET, DAILY (1/D)
     Route: 065
  3. BROMAN [Concomitant]
     Dosage: 3 MG, 2-3 TIMES DAILY
     Route: 065

REACTIONS (3)
  - DIABETES MELLITUS [None]
  - MEMORY IMPAIRMENT [None]
  - WEIGHT INCREASED [None]
